FAERS Safety Report 21099847 (Version 1)
Quarter: 2022Q3

REPORT INFORMATION
  Report Type: Spontaneous
  Country: CN (occurrence: CN)
  Receive Date: 20220719
  Receipt Date: 20220719
  Transmission Date: 20221027
  Serious: Yes (Life-Threatening, Hospitalization)
  Sender: FDA-Public Use
  Company Number: CN-Merck Healthcare KGaA-9336302

PATIENT
  Age: 51 Year
  Sex: Male
  Weight: 52 kg

DRUGS (3)
  1. ERBITUX [Suspect]
     Active Substance: CETUXIMAB
     Indication: Tongue neoplasm malignant stage unspecified
     Dosage: 700 MG, DAILY (ALONG WITH SODIUM CHLORIDE 250 ML)
     Route: 041
     Dates: start: 20220610, end: 20220610
  2. CISPLATIN [Suspect]
     Active Substance: CISPLATIN
     Indication: Tongue neoplasm malignant stage unspecified
     Dosage: 40 MG, DAILY (ALONG WITH SODIUM CHLORIDE 100 ML)
     Route: 041
     Dates: start: 20220610, end: 20220612
  3. FLUOROURACIL [Suspect]
     Active Substance: FLUOROURACIL
     Indication: Tongue neoplasm malignant stage unspecified
     Dosage: 1.2 G, DAILY (ALONG WITH SODIUM CHLORIDE 500 ML)
     Route: 041
     Dates: start: 20220610, end: 20220613

REACTIONS (2)
  - Full blood count decreased [Recovering/Resolving]
  - Sepsis [Recovering/Resolving]

NARRATIVE: CASE EVENT DATE: 20220624
